FAERS Safety Report 8429517-X (Version None)
Quarter: 2012Q2

REPORT INFORMATION
  Report Type: 
  Country: None (occurrence: None)
  Receive Date: 20120612
  Receipt Date: 20120607
  Transmission Date: 20120825
  Serious: Yes (Death, Life-Threatening, Hospitalization, Disabling)
  Sender: FDA-Public Use
  Company Number: PH-SANOFI-AVENTIS-2011SA075588

PATIENT
  Age: 68 Year
  Sex: Female
  Weight: 52.5 kg

DRUGS (12)
  1. TRANEXAMIC ACID [Concomitant]
     Dates: start: 20101114, end: 20101123
  2. IMIPENEM [Concomitant]
     Dates: start: 20101110
  3. TRASTUZUMAB [Suspect]
     Dosage: VIAL
     Route: 042
     Dates: start: 20101026, end: 20101116
  4. FLUCONAZOLE [Concomitant]
     Dates: start: 20101103, end: 20101109
  5. DOCETAXEL [Suspect]
     Dosage: FORM: VIAL
     Route: 042
     Dates: start: 20101026, end: 20101116
  6. CIPROFLOXACIN [Concomitant]
     Dates: start: 20101026, end: 20101102
  7. DOCETAXEL [Suspect]
     Dosage: FORM: VIAL
     Route: 042
     Dates: start: 20101026, end: 20101116
  8. VITAMIN K TAB [Concomitant]
     Dates: start: 20101107, end: 20101116
  9. IMIPENEM [Concomitant]
     Dates: start: 20101119, end: 20101123
  10. OMEPRAZOLE [Concomitant]
     Dates: start: 20101104, end: 20101123
  11. TINZAPARIN [Concomitant]
     Dosage: DOSE:10000 UNIT(S)
     Dates: start: 20101105, end: 20101106
  12. MUCOSTA [Concomitant]
     Dates: start: 20101109, end: 20101111

REACTIONS (5)
  - PNEUMONIA [None]
  - GASTROINTESTINAL ULCER [None]
  - NEUTROPENIA [None]
  - HEPATIC FAILURE [None]
  - FEBRILE NEUTROPENIA [None]
